FAERS Safety Report 4791536-2 (Version None)
Quarter: 2005Q4

REPORT INFORMATION
  Report Type: 
  Country: None (occurrence: None)
  Receive Date: 20051007
  Receipt Date: 20050118
  Transmission Date: 20060501
  Serious: Yes (Other)
  Sender: FDA-Public Use
  Company Number: US-BRISTOL-MYERS SQUIBB COMPANY-12836201

PATIENT
  Sex: Male

DRUGS (1)
  1. AVAPRO [Suspect]
     Route: 048
     Dates: end: 20050101

REACTIONS (1)
  - ANGIONEUROTIC OEDEMA [None]
